FAERS Safety Report 7263166-4 (Version None)
Quarter: 2011Q1

REPORT INFORMATION
  Report Type: 
  Country: None (occurrence: None)
  Receive Date: 20110130
  Receipt Date: 20101012
  Transmission Date: 20110831
  Serious: No
  Sender: FDA-Public Use
  Company Number: US-ABBOTT-10P-163-0677797-00

PATIENT
  Age: 59 Year
  Sex: Male

DRUGS (2)
  1. HUMIRA [Suspect]
     Indication: CROHN'S DISEASE
  2. HUMIRA [Suspect]

REACTIONS (2)
  - DRUG DOSE OMISSION [None]
  - DIARRHOEA [None]
